FAERS Safety Report 7912944-4 (Version None)
Quarter: 2011Q4

REPORT INFORMATION
  Report Type: 
  Country: None (occurrence: None)
  Receive Date: 20111114
  Receipt Date: 20111026
  Transmission Date: 20120403
  Serious: Yes (Other)
  Sender: FDA-Public Use
  Company Number: GB-SANOFI-AVENTIS-2011SA070818

PATIENT
  Sex: Female

DRUGS (2)
  1. SOLOSTAR [Suspect]
  2. LANTUS [Suspect]

REACTIONS (2)
  - BLOOD GLUCOSE INCREASED [None]
  - DEVICE MALFUNCTION [None]
